FAERS Safety Report 7346404-9 (Version None)
Quarter: 2011Q1

REPORT INFORMATION
  Report Type: 
  Country: None (occurrence: None)
  Receive Date: 20110311
  Receipt Date: 20110302
  Transmission Date: 20110831
  Serious: Yes (Other)
  Sender: FDA-Public Use
  Company Number: US-RB-015666-10

PATIENT
  Age: 49 Year
  Sex: Female

DRUGS (1)
  1. SUBOXONE [Suspect]
     Indication: PRODUCT USED FOR UNKNOWN INDICATION
     Route: 060
     Dates: start: 20100917, end: 20101002

REACTIONS (19)
  - DYSPNOEA [None]
  - WHEEZING [None]
  - CONVULSION [None]
  - OEDEMA PERIPHERAL [None]
  - SUBSTANCE ABUSE [None]
  - PANIC ATTACK [None]
  - SOMNOLENCE [None]
  - NAUSEA [None]
  - ASTHENIA [None]
  - DYSPHONIA [None]
  - URINARY HESITATION [None]
  - WEIGHT INCREASED [None]
  - PAIN [None]
  - PRURITUS [None]
  - EUPHORIC MOOD [None]
  - INTENTIONAL DRUG MISUSE [None]
  - CONSTIPATION [None]
  - BACK PAIN [None]
  - DRUG WITHDRAWAL SYNDROME [None]
